FAERS Safety Report 4930465-8 (Version None)
Quarter: 2006Q1

REPORT INFORMATION
  Report Type: 
  Country: None (occurrence: None)
  Receive Date: 20060302
  Receipt Date: 20060224
  Transmission Date: 20060701
  Serious: Yes (Hospitalization)
  Sender: FDA-Public Use
  Company Number: AU-BRISTOL-MYERS SQUIBB COMPANY-13294574

PATIENT
  Age: 58 Year
  Sex: Female

DRUGS (8)
  1. TEQUIN [Suspect]
     Dosage: ONE DOSE OF 400 MG ON 18-MAY-2001
  2. CEFOTAXIME SODIUM [Suspect]
     Indication: PNEUMONIA
     Dates: start: 20030731, end: 20030806
  3. ERYTHROMYCIN [Suspect]
     Indication: PNEUMONIA
     Route: 042
     Dates: start: 20030731, end: 20030803
  4. XIGRIS [Suspect]
     Indication: SEPSIS
     Route: 042
     Dates: start: 20030801, end: 20030805
  5. THIAMINE HCL [Concomitant]
  6. FOLATE [Concomitant]
  7. VENTOLIN [Concomitant]
  8. CALCIUM ASCORBATE [Concomitant]

REACTIONS (3)
  - CEREBRAL HAEMORRHAGE [None]
  - PETECHIAE [None]
  - SUBDURAL HAEMATOMA [None]
